FAERS Safety Report 9526087 (Version 3)
Quarter: 2014Q1

REPORT INFORMATION
  Report Type: Spontaneous
  Country: AU (occurrence: AU)
  Receive Date: 20130916
  Receipt Date: 20140113
  Transmission Date: 20141002
  Serious: Yes (Life-Threatening, Hospitalization)
  Sender: FDA-Public Use
  Company Number: AU-SANOFI-AVENTIS-2013SA089428

PATIENT
  Sex: Male

DRUGS (1)
  1. AUBAGIO [Suspect]
     Indication: PRODUCT USED FOR UNKNOWN INDICATION
     Route: 065

REACTIONS (2)
  - Hepatitis A [Recovering/Resolving]
  - Liver function test abnormal [Recovering/Resolving]
